FAERS Safety Report 14964949 (Version 2)
Quarter: 2019Q2

REPORT INFORMATION
  Report Type: Report from Study
  Country: US (occurrence: US)
  Receive Date: 20180601
  Receipt Date: 20190617
  Transmission Date: 20190711
  Serious: Yes (Hospitalization)
  Sender: FDA-Public Use
  Company Number: US-EISAI MEDICAL RESEARCH-EC-2018-035149

PATIENT
  Sex: Male
  Weight: 98 kg

DRUGS (34)
  1. MAGNESIUM [Concomitant]
     Active Substance: MAGNESIUM
  2. VITAMIN B12 [Concomitant]
     Active Substance: CYANOCOBALAMIN
  3. LOSARTAN POTASSIUM. [Concomitant]
     Active Substance: LOSARTAN POTASSIUM
  4. MONTELUKAST SODIUM. [Concomitant]
     Active Substance: MONTELUKAST SODIUM
  5. PROBIOTIC FORMULA [Concomitant]
  6. EZETIMIBE/SIMVASTATIN [Concomitant]
     Active Substance: EZETIMIBE\SIMVASTATIN
  7. AZELASTINE HCL [Concomitant]
     Active Substance: AZELASTINE HYDROCHLORIDE
  8. ROPINIROLE. [Concomitant]
     Active Substance: ROPINIROLE
  9. LENVIMA [Suspect]
     Active Substance: LENVATINIB
     Route: 048
     Dates: start: 2018, end: 201805
  10. LENVIMA [Suspect]
     Active Substance: LENVATINIB
     Route: 048
     Dates: start: 201903
  11. BACLOFEN. [Concomitant]
     Active Substance: BACLOFEN
  12. FLUTICASONE PROPIONATE. [Concomitant]
     Active Substance: FLUTICASONE PROPIONATE
  13. LACTULOSE. [Concomitant]
     Active Substance: LACTULOSE
  14. LENVIMA [Suspect]
     Active Substance: LENVATINIB
     Route: 048
     Dates: end: 201903
  15. ONDANSETRON HCL [Concomitant]
     Active Substance: ONDANSETRON HYDROCHLORIDE
  16. HYDROCODONE-ACETAMINOPHEN [Concomitant]
     Active Substance: ACETAMINOPHEN\HYDROCODONE
  17. METFORMIN HCL [Concomitant]
     Active Substance: METFORMIN HYDROCHLORIDE
  18. LORATADINE. [Concomitant]
     Active Substance: LORATADINE
  19. PROCHLORPERAZINE-MALEATE [Concomitant]
  20. AZITHROMYCIN ANHYDROUS. [Concomitant]
     Active Substance: AZITHROMYCIN ANHYDROUS
  21. HYDRALAZINE [Concomitant]
     Active Substance: HYDRALAZINE HYDROCHLORIDE
  22. ELIQUIS [Concomitant]
     Active Substance: APIXABAN
  23. LENVIMA [Suspect]
     Active Substance: LENVATINIB
     Route: 048
     Dates: start: 2018, end: 201809
  24. TRAMADOL HCL [Concomitant]
     Active Substance: TRAMADOL HYDROCHLORIDE
  25. DIAZEPAM. [Concomitant]
     Active Substance: DIAZEPAM
  26. ALPRAZOLAM. [Concomitant]
     Active Substance: ALPRAZOLAM
  27. COQ10 [Concomitant]
     Active Substance: UBIDECARENONE
  28. OMEPRAZOLE. [Concomitant]
     Active Substance: OMEPRAZOLE
  29. RANITIDINE HCL [Concomitant]
     Active Substance: RANITIDINE HYDROCHLORIDE
  30. CEFDINIR. [Concomitant]
     Active Substance: CEFDINIR
  31. LENVIMA [Suspect]
     Active Substance: LENVATINIB
     Indication: THYROID CANCER
     Route: 048
     Dates: start: 20180109, end: 201801
  32. SYNTHROID [Concomitant]
     Active Substance: LEVOTHYROXINE SODIUM
  33. BENZONATATE. [Concomitant]
     Active Substance: BENZONATATE
  34. METHYLPREDNISOLONE. [Concomitant]
     Active Substance: METHYLPREDNISOLONE

REACTIONS (17)
  - Decreased appetite [Not Recovered/Not Resolved]
  - Headache [Unknown]
  - Cardiac disorder [Unknown]
  - Somnolence [Unknown]
  - Diarrhoea [Not Recovered/Not Resolved]
  - Hypotension [Unknown]
  - Asthenia [Unknown]
  - Dehydration [Unknown]
  - Nausea [Unknown]
  - Blood pressure increased [Recovered/Resolved]
  - Pain [Unknown]
  - Cholecystitis infective [Not Recovered/Not Resolved]
  - Constipation [Unknown]
  - Weight decreased [Not Recovered/Not Resolved]
  - Transient ischaemic attack [Not Recovered/Not Resolved]
  - Urine output decreased [Not Recovered/Not Resolved]
  - Fluid intake reduced [Not Recovered/Not Resolved]

NARRATIVE: CASE EVENT DATE: 2018
